FAERS Safety Report 9059863 (Version 1)
Quarter: 2013Q1

REPORT INFORMATION
  Report Type: Spontaneous
  Country: US (occurrence: None)
  Receive Date: 20130206
  Receipt Date: 20130206
  Transmission Date: 20140127
  Serious: Yes (Death)
  Sender: FDA-Public Use
  Company Number: None

PATIENT
  Age: 83 Year
  Sex: Male
  Weight: 84.9 kg

DRUGS (16)
  1. DABIGATRAN [Suspect]
     Indication: ATRIAL FIBRILLATION
     Route: 048
     Dates: start: 201109, end: 201301
  2. ASPIRIN [Suspect]
     Indication: CORONARY ARTERY DISEASE
     Route: 048
  3. ACETAMINOPHEN-HYDROCODONE [Concomitant]
  4. ALLOPURINOL [Concomitant]
  5. ASPIRIN [Concomitant]
  6. SYMBICORT [Concomitant]
  7. BUMETANIDE [Concomitant]
  8. DRONEDARONE [Concomitant]
  9. DILTIAZEM [Concomitant]
  10. HYDRALAZINE [Concomitant]
  11. NITROGLYCERIN [Concomitant]
  12. OLMESARTAN [Concomitant]
  13. PANTOPRAZOLE [Concomitant]
  14. ROSULVASTATIN [Concomitant]
  15. TAMSULOSIN [Concomitant]
  16. ZOLPIDEM [Concomitant]

REACTIONS (4)
  - Fall [None]
  - Haemorrhage intracranial [None]
  - Mental status changes [None]
  - Unresponsive to stimuli [None]
